FAERS Safety Report 5155163-X (Version None)
Quarter: 2006Q4

REPORT INFORMATION
  Report Type: 
  Country: None (occurrence: None)
  Receive Date: 20061121
  Receipt Date: 20061110
  Transmission Date: 20070319
  Serious: Yes (Hospitalization)
  Sender: FDA-Public Use
  Company Number: US-ELI_LILLY_AND_COMPANY-US200611002335

PATIENT
  Age: 70 Year
  Sex: Female

DRUGS (1)
  1. FORTEO [Suspect]
     Indication: OSTEOPOROSIS
     Dosage: UNK, UNK
     Dates: start: 20041101

REACTIONS (9)
  - ASTHENIA [None]
  - CYST [None]
  - DIABETES MELLITUS [None]
  - FALL [None]
  - PAIN [None]
  - PAIN IN EXTREMITY [None]
  - PANCREATITIS ACUTE [None]
  - SCAR [None]
  - WOUND INFECTION STAPHYLOCOCCAL [None]
